FAERS Safety Report 9104967 (Version 1)
Quarter: 2013Q1

REPORT INFORMATION
  Report Type: Spontaneous
  Country: US (occurrence: US)
  Receive Date: 20130219
  Receipt Date: 20130219
  Transmission Date: 20140127
  Serious: Yes (Hospitalization, Other)
  Sender: FDA-Public Use
  Company Number: US-TEVA-386381USA

PATIENT
  Sex: Male

DRUGS (5)
  1. FOLINIC ACID [Suspect]
     Dosage: EVERY CYCLE
     Route: 042
     Dates: start: 201211
  2. ZALTRAP [Suspect]
     Route: 041
     Dates: start: 201211
  3. FLUOROURACIL [Suspect]
     Dosage: EVERY CYCLE
     Route: 042
     Dates: start: 201211
  4. IRINOTECAN HYDROCHLORIDE [Suspect]
     Dosage: EVERY CYCLE
     Route: 042
     Dates: start: 201211
  5. INSULIN [Concomitant]

REACTIONS (3)
  - Cerebrovascular accident [Recovered/Resolved]
  - Transient ischaemic attack [Recovered/Resolved]
  - Hyperglycaemia [Recovered/Resolved]
